FAERS Safety Report 15067333 (Version 1)
Quarter: 2018Q2

REPORT INFORMATION
  Report Type: Spontaneous
  Country: AU (occurrence: AU)
  Receive Date: 20180626
  Receipt Date: 20180626
  Transmission Date: 20180711
  Serious: Yes (Other)
  Sender: FDA-Public Use
  Company Number: AU-EPIC PHARMA LLC-2018EPC00307

PATIENT
  Age: 13 Year
  Sex: Female

DRUGS (3)
  1. RIVAROXABAN [Suspect]
     Active Substance: RIVAROXABAN
     Dosage: 420 MG, ONCE
     Route: 048
  2. CITALOPRAM [Suspect]
     Active Substance: CITALOPRAM HYDROBROMIDE
     Dosage: 42 G, ONCE
     Route: 048
  3. QUETIAPINE. [Suspect]
     Active Substance: QUETIAPINE
     Dosage: 42 G, ONCE
     Route: 048

REACTIONS (3)
  - Overdose [Recovered/Resolved]
  - Bezoar [Recovered/Resolved]
  - Ileus [Unknown]
